FAERS Safety Report 5893914-7 (Version None)
Quarter: 2008Q3

REPORT INFORMATION
  Report Type: 
  Country: None (occurrence: None)
  Receive Date: 20080923
  Receipt Date: 20080911
  Transmission Date: 20090109
  Serious: Yes (Hospitalization)
  Sender: FDA-Public Use
  Company Number: US-ELI_LILLY_AND_COMPANY-US200809002668

PATIENT
  Age: 65 Year
  Sex: Female

DRUGS (4)
  1. BYETTA [Suspect]
     Indication: GLUCOSE TOLERANCE IMPAIRED
     Dosage: UNK, UNKNOWN
     Route: 058
  2. COENZYME Q10 [Concomitant]
     Dosage: 100 MG, UNKNOWN
  3. FISH OIL [Concomitant]
     Dosage: UNK, UNKNOWN
  4. VITAMIN D [Concomitant]
     Dosage: 1000 MG, UNKNOWN

REACTIONS (1)
  - CEREBRAL HAEMORRHAGE [None]
